FAERS Safety Report 5463613-4 (Version None)
Quarter: 2007Q4

REPORT INFORMATION
  Report Type: 
  Country: None (occurrence: None)
  Receive Date: 20070919
  Receipt Date: 20070911
  Transmission Date: 20080405
  Serious: Yes (Death)
  Sender: FDA-Public Use
  Company Number: JS-JNJFOC-200709 00741

PATIENT
  Age: 69 Year
  Sex: Male
  Weight: 69 kg

DRUGS (13)
  1. DACOGEN [Suspect]
     Indication: MYELODYSPLASTIC SYNDROME
     Dosage: CYCLE 1; CYCLE 2; CYCLE 3; CYCLE 4; CYCLE 5
     Dates: start: 20070407
  2. DACOGEN [Suspect]
     Indication: MYELODYSPLASTIC SYNDROME
     Dosage: CYCLE 1; CYCLE 2; CYCLE 3; CYCLE 4; CYCLE 5
     Dates: start: 20070514
  3. DACOGEN [Suspect]
     Indication: MYELODYSPLASTIC SYNDROME
     Dosage: CYCLE 1; CYCLE 2; CYCLE 3; CYCLE 4; CYCLE 5
     Dates: start: 20070611
  4. DACOGEN [Suspect]
     Indication: MYELODYSPLASTIC SYNDROME
     Dosage: CYCLE 1; CYCLE 2; CYCLE 3; CYCLE 4; CYCLE 5
     Dates: start: 20070716
  5. DACOGEN [Suspect]
     Indication: MYELODYSPLASTIC SYNDROME
     Dosage: CYCLE 1; CYCLE 2; CYCLE 3; CYCLE 4; CYCLE 5
     Dates: start: 20070813
  6. ALLEGRA (FEXOFENADINE HYDROCHLORIDE) UNSPECIFIED [Concomitant]
  7. PULMICORT [Concomitant]
  8. ARTHROTEC (ARTHROTEC) UNSPECIFIED [Concomitant]
  9. CRESTOR (CHOLESTEROL- AND TRIGLYCERIDES REDUCERS) [Concomitant]
  10. GLUCOSAMINE (CHOLESTEROL- AND TRIGLYCERIDE REDUCERS) UNSPECIFIED [Concomitant]
  11. PREDNISONE (PREDNISONE) UNSPECIFIED [Concomitant]
  12. B6 (PYRIDOXINE HYDROCHLORIDE) UNSPECIFIED [Concomitant]
  13. CA (CALCIUM) UNSPECIFIED [Concomitant]

REACTIONS (3)
  - CONCOMITANT DISEASE PROGRESSION [None]
  - IDIOPATHIC PULMONARY FIBROSIS [None]
  - RESPIRATORY FAILURE [None]
